FAERS Safety Report 21221221 (Version 1)
Quarter: 2022Q3

REPORT INFORMATION
  Report Type: Spontaneous
  Country: US (occurrence: None)
  Receive Date: 20220816
  Receipt Date: 20220816
  Transmission Date: 20221027
  Serious: Yes (Life-Threatening)
  Sender: FDA-Public Use
  Company Number: None

PATIENT
  Age: 62 Year
  Sex: Female
  Weight: 107.9 kg

DRUGS (1)
  1. ISOSULFAN BLUE [Suspect]
     Active Substance: ISOSULFAN BLUE
     Indication: Lymphadenectomy
     Route: 026
     Dates: start: 20220805

REACTIONS (3)
  - Procedural hypotension [None]
  - Hypoxia [None]
  - Anaphylactic reaction [None]

NARRATIVE: CASE EVENT DATE: 20220805
